FAERS Safety Report 10238997 (Version 1)
Quarter: 2014Q2

REPORT INFORMATION
  Report Type: Spontaneous
  Country: FR (occurrence: FR)
  Receive Date: 20140616
  Receipt Date: 20140616
  Transmission Date: 20141212
  Serious: Yes (Hospitalization)
  Sender: FDA-Public Use
  Company Number: FR-ASTRAZENECA-2014SE39814

PATIENT
  Age: 12954 Day
  Sex: Female

DRUGS (1)
  1. DIPRIVAN [Suspect]
     Route: 042
     Dates: start: 20140513, end: 20140513

REACTIONS (4)
  - Extravasation [Recovered/Resolved]
  - Paraesthesia [Recovered/Resolved]
  - Hypoaesthesia [Unknown]
  - Application site pain [Recovered/Resolved]
